FAERS Safety Report 8251477-5 (Version None)
Quarter: 2012Q2

REPORT INFORMATION
  Report Type: 
  Country: None (occurrence: None)
  Receive Date: 20120402
  Receipt Date: 20120326
  Transmission Date: 20120825
  Serious: Yes (Hospitalization)
  Sender: FDA-Public Use
  Company Number: US-BAYER-2011-071074

PATIENT
  Age: 44 Year
  Sex: Female
  Weight: 104.31 kg

DRUGS (3)
  1. SYNTHROID [Concomitant]
     Indication: THYROID DISORDER
     Dosage: UNK
     Dates: start: 20010101
  2. MERIDIA [Concomitant]
  3. YAZ [Suspect]
     Dosage: UNK
     Dates: start: 20070501, end: 20091201

REACTIONS (8)
  - CHOLECYSTITIS ACUTE [None]
  - ANXIETY [None]
  - ABDOMINAL PAIN [None]
  - GALLBLADDER DISORDER [None]
  - ANHEDONIA [None]
  - POST CHOLECYSTECTOMY SYNDROME [None]
  - GASTROINTESTINAL DISORDER [None]
  - VOMITING [None]
